FAERS Safety Report 19140940 (Version 1)
Quarter: 2021Q2

REPORT INFORMATION
  Report Type: Report from Study
  Country: None (occurrence: US)
  Receive Date: 20210415
  Receipt Date: 20210415
  Transmission Date: 20210717
  Serious: Yes (Other)
  Sender: FDA-Public Use
  Company Number: US-ABBVIE-21P-163-3857745-00

PATIENT
  Age: 70 Year
  Sex: Male
  Weight: 80.6 kg

DRUGS (2)
  1. IBRUTINIB [Suspect]
     Active Substance: IBRUTINIB
     Indication: CHRONIC LYMPHOCYTIC LEUKAEMIA
     Dosage: C1?7 + UNTIL DISEASE PROGRESSION.  LAST ADMINISTERED DATE PRIOR TO AE: 03 MAR 2021.
     Route: 048
     Dates: start: 20140819
  2. ACYCLOVIR. [Concomitant]
     Active Substance: ACYCLOVIR
     Indication: PRODUCT USED FOR UNKNOWN INDICATION

REACTIONS (4)
  - Sinus bradycardia [Recovered/Resolved]
  - Conduction disorder [Recovered/Resolved]
  - Atrioventricular block complete [Recovered/Resolved]
  - Supraventricular tachycardia [Recovered/Resolved]

NARRATIVE: CASE EVENT DATE: 20210126
